FAERS Safety Report 5361576-3 (Version None)
Quarter: 2007Q2

REPORT INFORMATION
  Report Type: 
  Country: None (occurrence: None)
  Receive Date: 20070619
  Receipt Date: 20070611
  Transmission Date: 20071010
  Serious: Yes (Other)
  Sender: FDA-Public Use
  Company Number: PHBS2007AR09946

PATIENT
  Sex: Male

DRUGS (1)
  1. DIOVAN D [Suspect]
     Dosage: 80 MG, QD
     Dates: start: 20040101

REACTIONS (2)
  - BRONCHOSPASM [None]
  - COUGH [None]
